FAERS Safety Report 4560048-3 (Version None)
Quarter: 2005Q1

REPORT INFORMATION
  Report Type: 
  Country: None (occurrence: None)
  Receive Date: 20050125
  Receipt Date: 20050113
  Transmission Date: 20050727
  Serious: Yes (Other)
  Sender: FDA-Public Use
  Company Number: US-JNJFOC-20050103809

PATIENT
  Sex: Female
  Weight: 68.04 kg

DRUGS (5)
  1. INFLIXIMAB [Suspect]
     Indication: RHEUMATOID ARTHRITIS
     Route: 042
  2. WELLBUTRIN [Concomitant]
  3. CALCIUM GLUCONATE [Concomitant]
  4. TYLENOL [Concomitant]
     Dosage: 500-1000MG DAILY
  5. RANITIDINE [Concomitant]

REACTIONS (1)
  - VISION BLURRED [None]
